FAERS Safety Report 19483787 (Version 1)
Quarter: 2021Q3

REPORT INFORMATION
  Report Type: Spontaneous
  Country: US (occurrence: US)
  Receive Date: 20210701
  Receipt Date: 20210701
  Transmission Date: 20211014
  Serious: No
  Sender: FDA-Public Use
  Company Number: US-009507513-2106USA000978

PATIENT
  Age: 60 Year
  Sex: Male

DRUGS (1)
  1. NOXAFIL [Suspect]
     Active Substance: POSACONAZOLE
     Indication: MUCORMYCOSIS
     Dosage: 4 WEEKS TO COMPLETE A 10?WEEK COURSE
     Route: 048

REACTIONS (1)
  - Product use in unapproved indication [Unknown]
